APPROVED DRUG PRODUCT: ATENOLOL
Active Ingredient: ATENOLOL
Strength: 25MG
Dosage Form/Route: TABLET;ORAL
Application: A074126 | Product #003
Applicant: MYLAN PHARMACEUTICALS INC
Approved: Aug 26, 1998 | RLD: No | RS: No | Type: DISCN